FAERS Safety Report 11164977 (Version 2)
Quarter: 2015Q3

REPORT INFORMATION
  Report Type: Spontaneous
  Country: DE (occurrence: DE)
  Receive Date: 20150604
  Receipt Date: 20150818
  Transmission Date: 20151125
  Serious: Yes (Other)
  Sender: FDA-Public Use
  Company Number: DE-BIOGENIDEC-2015BI071024

PATIENT
  Sex: Female

DRUGS (7)
  1. TECFIDERA [Suspect]
     Active Substance: DIMETHYL FUMARATE
     Indication: MULTIPLE SCLEROSIS
     Route: 048
     Dates: start: 20140325, end: 20140901
  2. FOLIC ACID. [Concomitant]
     Active Substance: FOLIC ACID
     Indication: MULTIPLE SCLEROSIS
     Dates: start: 20130901
  3. DEKRISTOL [Concomitant]
     Active Substance: CHOLECALCIFEROL
     Dates: start: 20130901
  4. CANDESARTAN [Concomitant]
     Active Substance: CANDESARTAN
     Indication: HYPERTENSION
     Dates: start: 201310
  5. TECFIDERA [Suspect]
     Active Substance: DIMETHYL FUMARATE
     Indication: MULTIPLE SCLEROSIS
     Route: 048
     Dates: start: 20140901
  6. TECFIDERA [Suspect]
     Active Substance: DIMETHYL FUMARATE
     Indication: MULTIPLE SCLEROSIS
     Route: 048
  7. OEKOLP FORTE [Concomitant]
     Indication: THERAPEUTIC PROCEDURE
     Dates: start: 20150513, end: 20150518

REACTIONS (5)
  - Malignant melanoma [Recovered/Resolved]
  - Vaginal infection [Unknown]
  - Underdose [Recovered/Resolved]
  - Multiple sclerosis relapse [Unknown]
  - Cystitis [Unknown]

NARRATIVE: CASE EVENT DATE: 20140325
